FAERS Safety Report 5996770-1 (Version None)
Quarter: 2008Q4

REPORT INFORMATION
  Report Type: 
  Country: None (occurrence: None)
  Receive Date: 20081212
  Receipt Date: 20081023
  Transmission Date: 20090506
  Serious: No
  Sender: FDA-Public Use
  Company Number: US-ABBOTT-08P-163-0483654-00

PATIENT
  Sex: Female
  Weight: 87.622 kg

DRUGS (15)
  1. HUMIRA [Suspect]
     Indication: RHEUMATOID ARTHRITIS
     Dates: start: 20081016
  2. ATENOLOL [Concomitant]
     Indication: HYPERTENSION
  3. DIOVAN HCT [Concomitant]
     Indication: HYPERTENSION
  4. AMLODIPINE [Concomitant]
     Indication: HYPERTENSION
  5. CLOPIDOGREL [Concomitant]
     Indication: CARDIAC DISORDER
  6. ESOMEPRAZOLE SODIUM [Concomitant]
     Indication: GASTRIC DISORDER
  7. FOLIC ACID [Concomitant]
     Indication: VITAMIN SUPPLEMENTATION
  8. METHOTREXATE [Concomitant]
     Indication: RHEUMATOID ARTHRITIS
  9. CYCLOBENZAPRINE HCL [Concomitant]
     Indication: MUSCLE SPASMS
  10. DULOXETINE HYDROCHLORIDE [Concomitant]
     Indication: DEPRESSION
  11. NURATIN [Concomitant]
     Indication: EPILEPSY
  12. METFORMEN [Concomitant]
     Indication: DIABETES MELLITUS
  13. HYDROCODONE BITARTRATE [Concomitant]
     Indication: PAIN
  14. INSULIN 30/70 [Concomitant]
     Indication: DIABETES MELLITUS
  15. INSULIN GLARGINE [Concomitant]
     Indication: DIABETES MELLITUS

REACTIONS (2)
  - INJECTION SITE EXTRAVASATION [None]
  - PROCEDURAL COMPLICATION [None]
